FAERS Safety Report 7089923-5 (Version None)
Quarter: 2010Q4

REPORT INFORMATION
  Report Type: 
  Country: None (occurrence: None)
  Receive Date: 20101108
  Receipt Date: 20101027
  Transmission Date: 20110411
  Serious: Yes (Hospitalization)
  Sender: FDA-Public Use
  Company Number: BR-AMGEN-QUU441374

PATIENT

DRUGS (8)
  1. ENBREL [Suspect]
     Dosage: 50 MG, QWK
     Route: 058
     Dates: start: 20080501, end: 20100901
  2. ENBREL [Suspect]
     Route: 058
     Dates: start: 20040405, end: 20080514
  3. ENBREL [Suspect]
     Dosage: RESTARTED (DATE UNKNOWN); THEN INTERRUPTED ON 06-AUG-2010
     Route: 058
  4. PREDNISONE [Concomitant]
     Dosage: UNK UNK, UNK
  5. PREDNISONE [Concomitant]
     Dosage: UNSPECIFIED
  6. METHOTREXATE [Concomitant]
     Dosage: UNK UNK, UNK
  7. METHOTREXATE [Concomitant]
     Dosage: UNSPECIFIED
  8. ENALAPRIL MALEATE [Concomitant]
     Indication: HYPERTENSION
     Route: 048

REACTIONS (7)
  - ANTIPHOSPHOLIPID SYNDROME [None]
  - CONDITION AGGRAVATED [None]
  - GAIT DISTURBANCE [None]
  - IDIOPATHIC THROMBOCYTOPENIC PURPURA [None]
  - MENINGOCOCCAL BACTERAEMIA [None]
  - PLATELET COUNT DECREASED [None]
  - PYREXIA [None]
